FAERS Safety Report 13754585 (Version 2)
Quarter: 2017Q3

REPORT INFORMATION
  Report Type: Spontaneous
  Country: IT (occurrence: IT)
  Receive Date: 20170714
  Receipt Date: 20170808
  Transmission Date: 20171127
  Serious: Yes (Life-Threatening, Hospitalization, Other)
  Sender: FDA-Public Use
  Company Number: IT-ACCORD-053507

PATIENT
  Age: 68 Year
  Sex: Female

DRUGS (4)
  1. CYTARABINE/CYTARABINE HYDROCHLORIDE/CYTARABINE OCFOSFATE [Suspect]
     Active Substance: CYTARABINE
     Indication: NON-HODGKIN^S LYMPHOMA
     Dates: start: 20160922
  2. ETOPOSIDE. [Suspect]
     Active Substance: ETOPOSIDE
     Indication: NON-HODGKIN^S LYMPHOMA
     Dates: start: 20160922
  3. FOTEMUSTINE [Suspect]
     Active Substance: FOTEMUSTINE
     Indication: NON-HODGKIN^S LYMPHOMA
     Dates: start: 20160922
  4. MELPHALAN. [Suspect]
     Active Substance: MELPHALAN
     Indication: NON-HODGKIN^S LYMPHOMA
     Dates: start: 20160922

REACTIONS (8)
  - Disseminated intravascular coagulation [Recovering/Resolving]
  - Respiratory failure [Recovering/Resolving]
  - Streptococcal infection [Recovering/Resolving]
  - Aplasia [Recovered/Resolved]
  - Pharyngeal inflammation [Recovered/Resolved]
  - Septic shock [Recovered/Resolved]
  - Cytomegalovirus infection [Recovering/Resolving]
  - Off label use [Unknown]

NARRATIVE: CASE EVENT DATE: 2016
